FAERS Safety Report 24162426 (Version 1)
Quarter: 2024Q3

REPORT INFORMATION
  Report Type: Spontaneous
  Country: US (occurrence: None)
  Receive Date: 20240731
  Receipt Date: 20240731
  Transmission Date: 20241017
  Serious: Yes (Other)
  Sender: Public
  Company Number: None

PATIENT
  Age: 76 Year
  Sex: Female
  Weight: 87 kg

DRUGS (14)
  1. WEGOVY [Suspect]
     Active Substance: SEMAGLUTIDE
     Indication: Weight decreased
     Dosage: ONCE A WEEK INTRAMUSCULAR
     Route: 030
     Dates: start: 20240517, end: 20240705
  2. ADVAIR HFA [Concomitant]
     Active Substance: FLUTICASONE PROPIONATE\SALMETEROL XINAFOATE
  3. LOSARTAN POTASSIUM [Concomitant]
     Active Substance: LOSARTAN POTASSIUM
  4. METOPROLOL SUCCINATE [Concomitant]
     Active Substance: METOPROLOL SUCCINATE
  5. FUROSEMIDE [Concomitant]
     Active Substance: FUROSEMIDE
  6. LIPITOR [Concomitant]
     Active Substance: ATORVASTATIN CALCIUM
  7. RESTASIS [Concomitant]
     Active Substance: CYCLOSPORINE
  8. CLARITIN [Concomitant]
     Active Substance: LORATADINE
  9. PEPCID [Concomitant]
     Active Substance: FAMOTIDINE
  10. VITAMINS [Concomitant]
     Active Substance: VITAMINS
  11. ROGAINE [Concomitant]
     Active Substance: MINOXIDIL
  12. VITAMIN C [Concomitant]
     Active Substance: ASCORBIC ACID
  13. VITAMIN B12 [Concomitant]
     Active Substance: CYANOCOBALAMIN
  14. ASPIRIN [Concomitant]
     Active Substance: ASPIRIN

REACTIONS (9)
  - Malaise [None]
  - Diarrhoea [None]
  - Vomiting [None]
  - Nausea [None]
  - Fatigue [None]
  - Heart rate increased [None]
  - Dehydration [None]
  - Constipation [None]
  - Vein collapse [None]

NARRATIVE: CASE EVENT DATE: 20240705
